FAERS Safety Report 7620636-4 (Version None)
Quarter: 2011Q3

REPORT INFORMATION
  Report Type: 
  Country: None (occurrence: None)
  Receive Date: 20110719
  Receipt Date: 20110622
  Transmission Date: 20111222
  Serious: Yes (Hospitalization)
  Sender: FDA-Public Use
  Company Number: US-GLAXOSMITHKLINE-A0806593A

PATIENT
  Age: 61 Year
  Sex: Male

DRUGS (6)
  1. PROZAC [Concomitant]
  2. MAXZIDE [Concomitant]
  3. AVANDIA [Suspect]
     Indication: TYPE 2 DIABETES MELLITUS
     Dosage: 4MG PER DAY
     Route: 065
     Dates: end: 20070529
  4. ENALAPRIL MALEATE [Concomitant]
  5. DOXAZOSIN MESYLATE [Concomitant]
  6. ASPIRIN [Concomitant]

REACTIONS (3)
  - CORONARY ARTERY DISEASE [None]
  - CARDIAC FAILURE CONGESTIVE [None]
  - MYOCARDIAL INFARCTION [None]
